FAERS Safety Report 9594565 (Version 1)
Quarter: 2013Q3

REPORT INFORMATION
  Report Type: Spontaneous
  Country: US (occurrence: None)
  Receive Date: 20130927
  Receipt Date: 20130927
  Transmission Date: 20140515
  Serious: No
  Sender: FDA-Public Use
  Company Number: CABO-13002958

PATIENT
  Age: 16 Year
  Sex: Female

DRUGS (2)
  1. COMETRIQ [Suspect]
     Route: 048
     Dates: start: 20130614
  2. PAMIDRONATE ( PAMIDRONATE DISODIUM) [Concomitant]

REACTIONS (6)
  - Pyrexia [None]
  - Palmar-plantar erythrodysaesthesia syndrome [None]
  - Fatigue [None]
  - Diarrhoea [None]
  - Weight gain poor [None]
  - Decreased appetite [None]
